FAERS Safety Report 4445787-7 (Version None)
Quarter: 2004Q3

REPORT INFORMATION
  Report Type: 
  Country: None (occurrence: None)
  Receive Date: 20040908
  Receipt Date: 20040908
  Transmission Date: 20050211
  Serious: No
  Sender: FDA-Public Use
  Company Number: None

PATIENT
  Age: 64 Year
  Sex: Male
  Weight: 102 kg

DRUGS (26)
  1. CUBICIN [Suspect]
     Indication: ARTHRITIS INFECTIVE
     Dosage: 415 MG Q24 H IV
     Route: 042
     Dates: start: 20040810, end: 20040823
  2. CUBICIN [Suspect]
     Indication: ENTEROCOCCAL INFECTION
     Dosage: 415 MG Q24 H IV
     Route: 042
     Dates: start: 20040810, end: 20040823
  3. PANTOPRAZOLE [Concomitant]
  4. DOCUSATE [Concomitant]
  5. COLCHICINE [Concomitant]
  6. EXCITALOPRAM [Concomitant]
  7. MEGESTROL [Concomitant]
  8. TOPROL-XL [Concomitant]
  9. ENOXAPARIN SODIUM [Concomitant]
  10. MODAFINIL [Concomitant]
  11. TELMISARTAN [Concomitant]
  12. CLONIDINE HCL [Concomitant]
  13. KCL TAB [Concomitant]
  14. TERAZOSIN HCL [Concomitant]
  15. MAXZIDE [Concomitant]
  16. LOTREL [Concomitant]
  17. CELECOXIB [Concomitant]
  18. CEFEPIME [Concomitant]
  19. ACETAMINOPHEN [Concomitant]
  20. MAGNESIUM HYDROXIDE TAB [Concomitant]
  21. ONDANSETRON [Concomitant]
  22. PROPOXYPHENE HCL AND ACETAMINOPHEN [Concomitant]
  23. ZOLPIDEM TARTRATE [Concomitant]
  24. DIPHENHYDRAMINE HCL [Concomitant]
  25. HYDROCODONE BITARTRATE AND ACETAMINOPHEN [Concomitant]
  26. ALUMINUM/MAGNESIUM/SIMETHICONE [Concomitant]

REACTIONS (5)
  - BLOOD CREATINE PHOSPHOKINASE INCREASED [None]
  - BLOOD CREATININE INCREASED [None]
  - BLOOD UREA INCREASED [None]
  - METABOLIC ACIDOSIS [None]
  - MYOGLOBIN URINE PRESENT [None]
